FAERS Safety Report 7745044-7 (Version None)
Quarter: 2011Q3

REPORT INFORMATION
  Report Type: 
  Country: None (occurrence: None)
  Receive Date: 20110913
  Receipt Date: 20110901
  Transmission Date: 20111222
  Serious: No
  Sender: FDA-Public Use
  Company Number: US-BIOGENIDEC-2011BI034076

PATIENT
  Age: 62 Year
  Sex: Female

DRUGS (1)
  1. TYSABRI [Suspect]
     Indication: MULTIPLE SCLEROSIS
     Route: 042
     Dates: start: 20110322, end: 20110819

REACTIONS (7)
  - VERTIGO [None]
  - ASTHENIA [None]
  - VOMITING [None]
  - NAUSEA [None]
  - CENTRAL NERVOUS SYSTEM LESION [None]
  - BRAIN STEM SYNDROME [None]
  - VISION BLURRED [None]
